FAERS Safety Report 24621062 (Version 1)
Quarter: 2024Q4

REPORT INFORMATION
  Report Type: Spontaneous
  Country: TN (occurrence: TN)
  Receive Date: 20241114
  Receipt Date: 20241114
  Transmission Date: 20250114
  Serious: Yes (Death)
  Sender: JUBILANT
  Company Number: TN-JUBILANT CADISTA PHARMACEUTICALS-2024JUB00090

PATIENT
  Age: 55 Year
  Sex: Male

DRUGS (1)
  1. ESCITALOPRAM [Suspect]
     Active Substance: ESCITALOPRAM OXALATE
     Indication: Bipolar disorder
     Dosage: UNK

REACTIONS (2)
  - Cutaneous vasculitis [Fatal]
  - Pulmonary alveolar haemorrhage [Fatal]
